FAERS Safety Report 12152995 (Version 1)
Quarter: 2016Q1

REPORT INFORMATION
  Report Type: Spontaneous
  Country: US (occurrence: US)
  Receive Date: 20160305
  Receipt Date: 20160305
  Transmission Date: 20160526
  Serious: No
  Sender: FDA-Public Use
  Company Number: US-ASTRAZENECA-2015SF29039

PATIENT
  Age: 19860 Day
  Sex: Female
  Weight: 101.6 kg

DRUGS (5)
  1. SYMBICORT [Suspect]
     Active Substance: BUDESONIDE\FORMOTEROL FUMARATE DIHYDRATE
     Indication: CHRONIC OBSTRUCTIVE PULMONARY DISEASE
     Dosage: 160-4.5, TWO PUFFS  TWO TIMES A DAY
     Route: 055
  2. VENTOLIN [Concomitant]
     Active Substance: ALBUTEROL SULFATE
     Indication: INHALATION THERAPY
     Route: 055
  3. SYMBICORT [Suspect]
     Active Substance: BUDESONIDE\FORMOTEROL FUMARATE DIHYDRATE
     Indication: EMPHYSEMA
     Dosage: 160-4.5, TWO PUFFS  TWO TIMES A DAY
     Route: 055
  4. OXYGEN. [Concomitant]
     Active Substance: OXYGEN
     Dates: start: 20160218, end: 20160219
  5. TUDORZA PRESSAIR [Suspect]
     Active Substance: ACLIDINIUM BROMIDE
     Indication: CHRONIC OBSTRUCTIVE PULMONARY DISEASE
     Dosage: 400 MCG, 60 METERED DOSE INHALER, ONE PUFF TWO TIMES A DAY
     Route: 055
     Dates: end: 20151216

REACTIONS (4)
  - Drug ineffective [Recovered/Resolved]
  - Drug dose omission [Unknown]
  - Dyspnoea [Unknown]
  - Product quality issue [Unknown]

NARRATIVE: CASE EVENT DATE: 20151216
